FAERS Safety Report 24085750 (Version 3)
Quarter: 2024Q3

REPORT INFORMATION
  Report Type: Spontaneous
  Country: US (occurrence: US)
  Receive Date: 20240712
  Receipt Date: 20240904
  Transmission Date: 20241017
  Serious: No
  Sender: PFIZER
  Company Number: US-PFIZER INC-202400212514

PATIENT
  Age: 76 Year
  Sex: Female
  Weight: 74.376 kg

DRUGS (3)
  1. PAXLOVID [Suspect]
     Active Substance: NIRMATRELVIR\RITONAVIR
     Indication: COVID-19 treatment
     Dosage: REGULAR DOSAGE (NOT RENAL)
     Route: 048
     Dates: start: 20240620, end: 20240624
  2. ELIQUIS [Concomitant]
     Active Substance: APIXABAN
     Indication: Pulmonary embolism
     Dosage: 2.5 MG, 2X/DAY
  3. QNASL [Concomitant]
     Active Substance: BECLOMETHASONE DIPROPIONATE

REACTIONS (2)
  - COVID-19 [Recovering/Resolving]
  - Disease recurrence [Recovering/Resolving]

NARRATIVE: CASE EVENT DATE: 20240701
